FAERS Safety Report 12932329 (Version 1)
Quarter: 2016Q4

REPORT INFORMATION
  Report Type: Report from Study
  Country: None (occurrence: CA)
  Receive Date: 20161111
  Receipt Date: 20161111
  Transmission Date: 20170207
  Serious: Yes (Hospitalization, Other)
  Sender: FDA-Public Use
  Company Number: CA-ABBVIE-16K-028-1712198-00

PATIENT
  Sex: Male

DRUGS (2)
  1. HUMIRA [Suspect]
     Active Substance: ADALIMUMAB
     Indication: PSORIATIC ARTHROPATHY
     Route: 058
     Dates: start: 20040213
  2. BABY ASPIRIN [Concomitant]
     Active Substance: ASPIRIN
     Indication: PRODUCT USED FOR UNKNOWN INDICATION

REACTIONS (19)
  - Aerophagia [Unknown]
  - Sinus disorder [Unknown]
  - Neck pain [Not Recovered/Not Resolved]
  - Chest pain [Recovered/Resolved]
  - Hiatus hernia [Unknown]
  - Blood pressure fluctuation [Not Recovered/Not Resolved]
  - Fatigue [Unknown]
  - Arthralgia [Unknown]
  - Palpitations [Recovered/Resolved]
  - Joint swelling [Recovering/Resolving]
  - Dry mouth [Unknown]
  - Atrial fibrillation [Not Recovered/Not Resolved]
  - Cardiac flutter [Unknown]
  - Dyspnoea [Recovered/Resolved]
  - Hypertension [Recovered/Resolved]
  - Arrhythmia [Unknown]
  - Oropharyngeal pain [Unknown]
  - Headache [Unknown]
  - Pain [Not Recovered/Not Resolved]

NARRATIVE: CASE EVENT DATE: 2016
